FAERS Safety Report 6608233-0 (Version None)
Quarter: 2010Q1

REPORT INFORMATION
  Report Type: 
  Country: None (occurrence: None)
  Receive Date: 20100301
  Receipt Date: 20100223
  Transmission Date: 20100710
  Serious: Yes (Death)
  Sender: FDA-Public Use
  Company Number: TW-ROCHE-682796

PATIENT
  Age: 50 Year
  Sex: Male
  Weight: 80 kg

DRUGS (3)
  1. PEGASYS [Suspect]
     Indication: HEPATITIS C
     Route: 058
     Dates: start: 20091026, end: 20100118
  2. ROBATROL [Suspect]
     Indication: HEPATITIS C
     Dosage: FREQUENCY REPORTED AS QD
     Route: 048
     Dates: start: 20091026, end: 20100118
  3. ROBATROL [Suspect]
     Dosage: FREQUENCY REPORTED AS DAILY.
     Route: 048
     Dates: start: 20100118, end: 20100122

REACTIONS (3)
  - HAEMOGLOBIN DECREASED [None]
  - MYOCARDIAL INFARCTION [None]
  - WHITE BLOOD CELL COUNT DECREASED [None]
